FAERS Safety Report 24805276 (Version 1)
Quarter: 2025Q1

REPORT INFORMATION
  Report Type: Spontaneous
  Country: GB (occurrence: None)
  Receive Date: 20250103
  Receipt Date: 20250103
  Transmission Date: 20250409
  Serious: No
  Sender: FDA-CTU
  Company Number: None

PATIENT
  Age: 38 Year
  Sex: Female
  Weight: 67 kg

DRUGS (3)
  1. NEXPLANON [Suspect]
     Active Substance: ETONOGESTREL
     Indication: Contraception
     Dates: start: 20231023
  2. QUETIAPINE [Concomitant]
     Active Substance: QUETIAPINE
  3. PREGABALIN [Concomitant]
     Active Substance: PREGABALIN

REACTIONS (3)
  - Paranoia [None]
  - Depression [None]
  - Sexual dysfunction [None]

NARRATIVE: CASE EVENT DATE: 20240601
